FAERS Safety Report 15059228 (Version 1)
Quarter: 2018Q2

REPORT INFORMATION
  Report Type: Spontaneous
  Country: US (occurrence: US)
  Receive Date: 20180622
  Receipt Date: 20180622
  Transmission Date: 20180711
  Serious: Yes (Death)
  Sender: FDA-Public Use
  Company Number: None

PATIENT
  Age: 38 Year
  Sex: Male

DRUGS (1)
  1. KRATOM [Suspect]
     Active Substance: MITRAGYNINE\HERBALS

REACTIONS (3)
  - Brain oedema [None]
  - Pulmonary oedema [None]
  - Cardiac failure [None]
